FAERS Safety Report 12486427 (Version 17)
Quarter: 2021Q4

REPORT INFORMATION
  Report Type: Spontaneous
  Country: US (occurrence: US)
  Receive Date: 20160621
  Receipt Date: 20211026
  Transmission Date: 20220303
  Serious: Yes (Hospitalization, Other)
  Sender: FDA-Public Use
  Company Number: US-PFIZER INC-2016284010

PATIENT
  Age: 75 Year
  Sex: Male
  Weight: 102 kg

DRUGS (21)
  1. LYRICA [Suspect]
     Active Substance: PREGABALIN
     Indication: Neuralgia
     Dosage: 1 DF, TWICE A DAY (ONE DOSE OF LYRICA AT BREAKFAST AND AT LUNCH)
     Route: 048
  2. LYRICA [Suspect]
     Active Substance: PREGABALIN
     Indication: Paraesthesia
     Dosage: UNK, ALTERNATE DAY (ONCE EVERY TWO DAYS)
     Route: 048
  3. LYRICA [Suspect]
     Active Substance: PREGABALIN
     Indication: Herpes zoster
     Dosage: 100 MG, THREE TIMES A DAY
     Route: 048
     Dates: start: 201606
  4. LYRICA [Suspect]
     Active Substance: PREGABALIN
     Indication: Neuropathy peripheral
     Dosage: 50 MG, UNK
     Route: 048
  5. LYRICA [Suspect]
     Active Substance: PREGABALIN
     Indication: Post herpetic neuralgia
     Dosage: 150 MG, THREE TIMES A DAY
     Route: 048
     Dates: start: 20160815
  6. LYRICA [Suspect]
     Active Substance: PREGABALIN
     Indication: Diabetic neuropathy
     Dosage: 150 MG, THREE TIMES A DAY
     Route: 048
  7. LYRICA [Suspect]
     Active Substance: PREGABALIN
     Indication: Trigeminal neuralgia
     Dosage: 150 MG, THREE TIMES A DAY
  8. LISINOPRIL [Concomitant]
     Active Substance: LISINOPRIL
     Indication: Hypertension
     Dosage: 30 MG, DAILY
     Route: 048
  9. LISINOPRIL [Concomitant]
     Active Substance: LISINOPRIL
     Indication: Cardiac disorder
  10. DIAZEPAM [Concomitant]
     Active Substance: DIAZEPAM
     Indication: Sleep disorder
     Dosage: 20 MG, 1X/DAY  (AT NIGHT)
     Route: 048
  11. PRAVASTATIN [Concomitant]
     Active Substance: PRAVASTATIN
     Indication: Heart rate irregular
     Dosage: 40 MG, 1X/DAY
     Route: 048
  12. UBIQUINOL [Concomitant]
     Active Substance: UBIQUINOL
     Dosage: 1 DF, DAILY
     Route: 048
  13. ERGOCALCIFEROL [Concomitant]
     Active Substance: ERGOCALCIFEROL
     Dosage: UNK
     Route: 048
  14. VITAMIN C [Concomitant]
     Active Substance: ASCORBIC ACID
     Dosage: UNK
     Route: 048
  15. CINNAMON [Concomitant]
     Active Substance: CINNAMON
     Indication: Blood glucose increased
     Dosage: UNK
     Route: 048
  16. PRASTERONE [Concomitant]
     Active Substance: PRASTERONE
     Dosage: UNK
  17. ATENOLOL [Concomitant]
     Active Substance: ATENOLOL
     Indication: Blood cholesterol abnormal
     Dosage: 1 DF, DAILY
     Route: 048
  18. ATENOLOL [Concomitant]
     Active Substance: ATENOLOL
     Indication: Cardiac disorder
     Dosage: 40 MG, 1X/DAY
     Route: 048
  19. VITAMIN B1 [Concomitant]
     Active Substance: THIAMINE HYDROCHLORIDE
     Dosage: UNK
  20. GABAPENTIN [Concomitant]
     Active Substance: GABAPENTIN
     Indication: Post herpetic neuralgia
     Dosage: 2 DF, 2X/DAY
  21. GABAPENTIN [Concomitant]
     Active Substance: GABAPENTIN
     Dosage: 3600 MG, DAILY

REACTIONS (11)
  - Pain [Not Recovered/Not Resolved]
  - Squamous cell carcinoma [Recovered/Resolved]
  - Neoplasm malignant [Unknown]
  - Memory impairment [Unknown]
  - Facial nerve disorder [Not Recovered/Not Resolved]
  - Visual impairment [Not Recovered/Not Resolved]
  - Amnesia [Unknown]
  - Eye pain [Unknown]
  - Product dose omission issue [Unknown]
  - Pruritus [Unknown]
  - Intentional product use issue [Unknown]

NARRATIVE: CASE EVENT DATE: 20160601
